FAERS Safety Report 5181090-8 (Version None)
Quarter: 2006Q4

REPORT INFORMATION
  Report Type: 
  Country: None (occurrence: None)
  Receive Date: 20061220
  Receipt Date: 20061120
  Transmission Date: 20070319
  Serious: Yes (Other)
  Sender: FDA-Public Use
  Company Number: PHEH2006US14469

PATIENT
  Sex: Female

DRUGS (8)
  1. ZELNORM [Suspect]
     Indication: CONSTIPATION
     Dosage: 6 MG, BID
     Route: 048
     Dates: start: 20010101
  2. LAMICTAL [Concomitant]
  3. PERCOCET [Concomitant]
  4. NEURONTIN [Concomitant]
  5. CYMBALTA [Concomitant]
  6. DIAZEPAM [Concomitant]
  7. FLEXERIL [Concomitant]
  8. VYTORIN [Concomitant]

REACTIONS (5)
  - BACK INJURY [None]
  - DRUG INEFFECTIVE [None]
  - FOOT FRACTURE [None]
  - MUSCULOSKELETAL DISCOMFORT [None]
  - SURGERY [None]
